FAERS Safety Report 24217926 (Version 1)
Quarter: 2024Q3

REPORT INFORMATION
  Report Type: Spontaneous
  Country: US (occurrence: US)
  Receive Date: 20240816
  Receipt Date: 20240816
  Transmission Date: 20241017
  Serious: Yes (Disabling, Other)
  Sender: REGENERON
  Company Number: US-REGENERON PHARMACEUTICALS, INC.-2024-109267

PATIENT
  Sex: Male

DRUGS (1)
  1. EYLEA [Suspect]
     Active Substance: AFLIBERCEPT
     Indication: Neovascular age-related macular degeneration
     Dosage: UNK, EVERY 10 WEEKS INTO LEFT EYE (FORMULATION: UNKNOWN)
     Dates: start: 2016

REACTIONS (3)
  - Blindness unilateral [Unknown]
  - Optic atrophy [Unknown]
  - Dry age-related macular degeneration [Unknown]

NARRATIVE: CASE EVENT DATE: 20220101
